FAERS Safety Report 16483181 (Version 1)
Quarter: 2019Q2

REPORT INFORMATION
  Report Type: Spontaneous
  Country: US (occurrence: US)
  Receive Date: 20190516
  Receipt Date: 20190516
  Transmission Date: 20190711
  Serious: No
  Sender: FDA-Public Use
  Company Number: None

PATIENT
  Age: 70 Year
  Sex: Male

DRUGS (2)
  1. PREDNISONE 5MG TAB [Suspect]
     Active Substance: PREDNISONE
     Indication: PROSTATE CANCER
     Route: 048
     Dates: start: 201904
  2. ABIRATERONE. [Concomitant]
     Active Substance: ABIRATERONE ACETATE

REACTIONS (2)
  - Clostridium difficile colitis [None]
  - Salmonellosis [None]

NARRATIVE: CASE EVENT DATE: 20190506
